FAERS Safety Report 18379631 (Version 1)
Quarter: 2020Q4

REPORT INFORMATION
  Report Type: Spontaneous
  Country: GB (occurrence: GB)
  Receive Date: 20201014
  Receipt Date: 20201014
  Transmission Date: 20210114
  Serious: Yes (Other)
  Sender: FDA-Public Use
  Company Number: GB-TEVA-2020-GB-1837196

PATIENT
  Age: 34 Year
  Sex: Male
  Weight: 76.5 kg

DRUGS (6)
  1. TRAMADOL. [Concomitant]
     Active Substance: TRAMADOL
     Dosage: 1-2 FOUR TIMES A DAY WHEN REQUIRED, 50 MG
     Dates: start: 20200624
  2. AMITRIPTYLINE [Concomitant]
     Active Substance: AMITRIPTYLINE
     Dosage: ONE TO TWO AT NIGHT, 10 MG
     Dates: start: 20200624
  3. COCODAMOL [Concomitant]
     Active Substance: ACETAMINOPHEN\CODEINE PHOSPHATE
     Dosage: 30/500MG . 1-2 UP TO FOUR TIMES DAILY.
     Dates: start: 20200624
  4. NAPROXEN. [Suspect]
     Active Substance: NAPROXEN
     Indication: NECK PAIN
     Dosage: 500 MG
     Route: 048
  5. OMEPRAZOLE. [Concomitant]
     Active Substance: OMEPRAZOLE
     Dosage: 20 MG
     Dates: start: 20200624
  6. DERMOL [Concomitant]
     Active Substance: BENZALKONIUM CHLORIDE\CHLORHEXIDINE HYDROCHLORIDE\ISOPROPYL MYRISTATE\PARAFFIN
     Dosage: 3 DOSAGE FORM
     Dates: start: 20200908

REACTIONS (2)
  - Pseudoporphyria [Unknown]
  - Photodermatosis [Unknown]

NARRATIVE: CASE EVENT DATE: 20200710
